FAERS Safety Report 17988763 (Version 1)
Quarter: 2020Q3

REPORT INFORMATION
  Report Type: Report from Study
  Country: US (occurrence: US)
  Receive Date: 20200707
  Receipt Date: 20200707
  Transmission Date: 20201103
  Serious: Yes (Hospitalization)
  Sender: FDA-Public Use
  Company Number: US-DECIPHERA PHARMACEUTICALS-2020US000191

PATIENT
  Age: 66 Year
  Sex: Male

DRUGS (13)
  1. OLANZAPINE. [Concomitant]
     Active Substance: OLANZAPINE
     Indication: DECREASED APPETITE
  2. ALBUTEROL. [Concomitant]
     Active Substance: ALBUTEROL
     Indication: DYSPNOEA
     Dosage: 90 MCG, UNK
     Route: 055
     Dates: start: 2019
  3. OLANZAPINE. [Concomitant]
     Active Substance: OLANZAPINE
     Indication: APPETITE DISORDER
     Dosage: 5 MG, UNK
     Route: 048
     Dates: start: 2019
  4. DCC?2618 [Suspect]
     Active Substance: RIPRETINIB
     Indication: MALIGNANT MELANOMA
     Dosage: 150 MG, QD
     Route: 048
     Dates: start: 20200113, end: 20200211
  5. RESTASIS [Concomitant]
     Active Substance: CYCLOSPORINE
     Indication: KERATITIS
     Dosage: 0.05%, 1 DROP (GTT), UNK
     Route: 047
     Dates: start: 20200211
  6. PREDNISOLONE ACETATE. [Concomitant]
     Active Substance: PREDNISOLONE ACETATE
     Indication: UVEITIS
     Dosage: 1%, 1 DROP (GTT), UNK
     Route: 047
     Dates: start: 201808
  7. SERTRALINE [Concomitant]
     Active Substance: SERTRALINE HYDROCHLORIDE
     Indication: ANXIETY
     Dosage: 100 MG, UNK
     Route: 048
     Dates: start: 2019
  8. SERTRALINE [Concomitant]
     Active Substance: SERTRALINE HYDROCHLORIDE
     Indication: DEPRESSION
  9. DCC?2618 [Suspect]
     Active Substance: RIPRETINIB
     Dosage: 150 MG, QD
     Route: 048
     Dates: start: 20200219
  10. PREDNISOLONE ACETATE. [Concomitant]
     Active Substance: PREDNISOLONE ACETATE
     Indication: KERATITIS
  11. ALKA?SELTZER [Concomitant]
     Active Substance: ANHYDROUS CITRIC ACID\ASPIRIN\SODIUM BICARBONATE
     Indication: GASTROOESOPHAGEAL REFLUX DISEASE
     Dosage: 325 MG, UNK
     Route: 048
     Dates: start: 2019
  12. MARIJUANA [Concomitant]
     Active Substance: CANNABIS SATIVA SUBSP. INDICA TOP
     Indication: PROPHYLAXIS
     Dosage: UNK
     Route: 065
     Dates: start: 2019
  13. ALPRAZOLAM. [Concomitant]
     Active Substance: ALPRAZOLAM
     Indication: ANXIETY
     Dosage: 0.25 MG, UNK
     Route: 048
     Dates: start: 20190722

REACTIONS (1)
  - Colitis [Not Recovered/Not Resolved]

NARRATIVE: CASE EVENT DATE: 20200627
